FAERS Safety Report 11541526 (Version 1)
Quarter: 2015Q3

REPORT INFORMATION
  Report Type: Spontaneous
  Country: US (occurrence: US)
  Receive Date: 20150923
  Receipt Date: 20150923
  Transmission Date: 20151125
  Serious: No
  Sender: FDA-Public Use
  Company Number: US-WATSON-2015-09298

PATIENT
  Age: 65 Year
  Sex: Male

DRUGS (1)
  1. BUTALBITAL/ACETAMINOPHEN/CAFFEINE/CODEINE 50/325/40/30 (WATSON) [Suspect]
     Active Substance: ACETAMINOPHEN\BUTALBITAL\CAFFEINE\CODEINE PHOSPHATE
     Indication: MIGRAINE
     Dosage: 2 DF, Q4H
     Route: 048

REACTIONS (5)
  - Burning sensation mucosal [Recovering/Resolving]
  - Dysgeusia [Recovering/Resolving]
  - Cough [Recovering/Resolving]
  - Product solubility abnormal [None]
  - Vomiting [Recovering/Resolving]

NARRATIVE: CASE EVENT DATE: 20150420
